FAERS Safety Report 6727226-6 (Version None)
Quarter: 2010Q2

REPORT INFORMATION
  Report Type: 
  Country: None (occurrence: None)
  Receive Date: 20100517
  Receipt Date: 20100511
  Transmission Date: 20101027
  Serious: Yes (Hospitalization)
  Sender: FDA-Public Use
  Company Number: JP-B.I. PHARMACEUTICALS,INC./RIDGEFIELD-2010-BP-05385NB

PATIENT
  Age: 85 Year
  Sex: Male

DRUGS (6)
  1. MICARDIS [Suspect]
     Indication: HYPERTENSION
     Dosage: 40 MG
     Route: 048
     Dates: end: 20100418
  2. AMLODIPINE [Concomitant]
     Dosage: 10 MG
     Route: 048
  3. ASPIRIN [Concomitant]
     Dosage: 100 MG
     Route: 048
  4. PLAVIX [Concomitant]
     Dosage: 75 MG
     Route: 048
  5. ARTIST [Concomitant]
     Dosage: 5 MG
     Route: 048
  6. MINIPRESS [Concomitant]
     Route: 048

REACTIONS (1)
  - HYPOGLYCAEMIA [None]
